FAERS Safety Report 9216451 (Version 2)
Quarter: 2013Q2

REPORT INFORMATION
  Report Type: Spontaneous
  Country: GB (occurrence: None)
  Receive Date: 20130402
  Receipt Date: 20130405
  Transmission Date: 20140414
  Serious: Yes (Other)
  Sender: FDA-Public Use
  Company Number: AUR-APL-2013-02601

PATIENT
  Age: 73 Year
  Sex: Male
  Weight: 76 kg

DRUGS (8)
  1. SIMVASTATIN (SIMVASTATIN) [Suspect]
     Indication: PRODUCT USED FOR UNKNOWN INDICATION
     Dosage: 40 MG
  2. DAKTARIN [Suspect]
     Indication: ORAL FUNGAL INFECTION
     Route: 061
     Dates: start: 20120713, end: 20120720
  3. ASPIRIN (ACETYLSALICYLIC ACID) [Concomitant]
  4. ATENOLOL (ATENOLOL) [Concomitant]
  5. BENDROFLUMETHIAZIDE (BENDROFLUMETHIAZIDE [Concomitant]
  6. CLOPIDOGREL [Concomitant]
  7. DIPYRIDAMOLE [Concomitant]
  8. RAMIPRIL [Concomitant]

REACTIONS (4)
  - Oral fungal infection [None]
  - Eyelid ptosis [None]
  - Myasthenia gravis [None]
  - Labelled drug-drug interaction medication error [None]
